FAERS Safety Report 20015662 (Version 1)
Quarter: 2021Q4

REPORT INFORMATION
  Report Type: Spontaneous
  Country: US (occurrence: None)
  Receive Date: 20211101
  Receipt Date: 20211101
  Transmission Date: 20220303
  Serious: No
  Sender: FDA-Public Use
  Company Number: None

PATIENT
  Age: 53 Year
  Sex: Female
  Weight: 99 kg

DRUGS (15)
  1. REGEN-COV [Suspect]
     Active Substance: CASIRIVIMAB\IMDEVIMAB
     Indication: Suspected COVID-19
     Dates: start: 20211026, end: 20211026
  2. Allegra-180 [Concomitant]
  3. Singulair (10 mg) [Concomitant]
  4. Q-Nasal [Concomitant]
  5. Candesartan (16 mg) [Concomitant]
  6. HCTZ (25 mg) [Concomitant]
  7. Meloxicam (7.5 mg) [Concomitant]
  8. Aspirin (81 mg) [Concomitant]
  9. MULTI-VITAMIN [Concomitant]
     Active Substance: .ALPHA.-TOCOPHEROL ACETATE, DL-\ASCORBIC ACID\CYANOCOBALAMIN\FLUORIDE ION\FOLIC ACID\NIACIN\PYRIDOXI
  10. Black Elderberry [Concomitant]
  11. PROBIOTICS NOS [Concomitant]
     Active Substance: PROBIOTICS NOS
  12. VITAMIN C [Concomitant]
     Active Substance: ASCORBIC ACID
  13. VITAMIN D [Concomitant]
     Active Substance: VITAMIN D NOS
  14. MELATONIN [Concomitant]
     Active Substance: MELATONIN
  15. TYLENOL [Concomitant]
     Active Substance: ACETAMINOPHEN

REACTIONS (3)
  - Blood pressure increased [None]
  - Paraesthesia oral [None]
  - Dizziness [None]

NARRATIVE: CASE EVENT DATE: 20211028
